FAERS Safety Report 7784074-6 (Version None)
Quarter: 2011Q3

REPORT INFORMATION
  Report Type: 
  Country: None (occurrence: None)
  Receive Date: 20110928
  Receipt Date: 20110621
  Transmission Date: 20111222
  Serious: No
  Sender: FDA-Public Use
  Company Number: US-BAYER-2011-055383

PATIENT
  Sex: Female

DRUGS (2)
  1. MUSCLE RELAXANTS, CENTRALLY ACTING AGENTS [Concomitant]
     Route: 048
  2. ALEVE (CAPLET) [Suspect]
     Indication: MYALGIA
     Route: 048

REACTIONS (1)
  - THERAPEUTIC PRODUCT INEFFECTIVE [None]
